FAERS Safety Report 5404873-5 (Version None)
Quarter: 2007Q3

REPORT INFORMATION
  Report Type: 
  Country: None (occurrence: None)
  Receive Date: 20070803
  Receipt Date: 20070731
  Transmission Date: 20080115
  Serious: Yes (Other)
  Sender: FDA-Public Use
  Company Number: US-JNJFOC-20070707185

PATIENT
  Sex: Male

DRUGS (3)
  1. TYLENOL (CAPLET) [Suspect]
     Route: 048
  2. TYLENOL (CAPLET) [Suspect]
     Indication: EYE PAIN
     Route: 048
  3. ALEVE [Suspect]
     Indication: EYE PAIN
     Route: 048

REACTIONS (2)
  - CHEST PAIN [None]
  - TACHYCARDIA [None]
